FAERS Safety Report 22360436 (Version 1)
Quarter: 2023Q2

REPORT INFORMATION
  Report Type: Other
  Country: CN (occurrence: CN)
  Receive Date: 20230524
  Receipt Date: 20230524
  Transmission Date: 20230722
  Serious: Yes (Hospitalization)
  Sender: FDA-Public Use
  Company Number: CN-002147023-NVSC2023CN109260

PATIENT

DRUGS (3)
  1. RUXOLITINIB [Suspect]
     Active Substance: RUXOLITINIB
     Indication: Peripheral T-cell lymphoma unspecified
     Dosage: 10 MG, BID
     Route: 048
     Dates: start: 20230407, end: 20230415
  2. CYCLOPHOSPHAMIDE [Suspect]
     Active Substance: CYCLOPHOSPHAMIDE
     Indication: Peripheral T-cell lymphoma unspecified
     Dosage: 1300 MG, ONCE IN 7 DAYS
     Route: 041
     Dates: start: 20230410, end: 20230412
  3. MITOXANTRONE HYDROCHLORIDE [Suspect]
     Active Substance: MITOXANTRONE HYDROCHLORIDE
     Indication: Peripheral T-cell lymphoma unspecified
     Dosage: 30 MG, QD (LIPOSOMAL INJECTION)
     Route: 041
     Dates: start: 20230411, end: 20230411

REACTIONS (2)
  - Product use in unapproved indication [Unknown]
  - Neutrophil count decreased [Recovering/Resolving]

NARRATIVE: CASE EVENT DATE: 20230421
